FAERS Safety Report 7031649-8 (Version None)
Quarter: 2010Q4

REPORT INFORMATION
  Report Type: 
  Country: None (occurrence: None)
  Receive Date: 20101006
  Receipt Date: 20101006
  Transmission Date: 20110411
  Serious: Yes (Other)
  Sender: FDA-Public Use
  Company Number: None

PATIENT
  Sex: Female
  Weight: 90.7194 kg

DRUGS (4)
  1. LEVAQUIN [Suspect]
     Indication: COLITIS
     Dosage: UNKNOWN UNKNOWN IV
     Route: 042
     Dates: start: 20071226, end: 20071231
  2. LEVAQUIN [Suspect]
     Indication: LOWER GASTROINTESTINAL HAEMORRHAGE
     Dosage: UNKNOWN UNKNOWN IV
     Route: 042
     Dates: start: 20071226, end: 20071231
  3. LEVAQUIN [Suspect]
     Indication: COLITIS
     Dosage: UNKNOWN UNKNOWN IV
     Route: 042
     Dates: start: 20080102, end: 20080108
  4. LEVAQUIN [Suspect]
     Indication: LOWER GASTROINTESTINAL HAEMORRHAGE
     Dosage: UNKNOWN UNKNOWN IV
     Route: 042
     Dates: start: 20080102, end: 20080108

REACTIONS (6)
  - ANTINUCLEAR ANTIBODY POSITIVE [None]
  - ARTHRALGIA [None]
  - BRONCHITIS [None]
  - JOINT STIFFNESS [None]
  - JOINT SWELLING [None]
  - PNEUMONIA [None]
